FAERS Safety Report 8531435-3 (Version None)
Quarter: 2012Q3

REPORT INFORMATION
  Report Type: 
  Country: None (occurrence: None)
  Receive Date: 20120723
  Receipt Date: 20120711
  Transmission Date: 20120928
  Serious: Yes (Other)
  Sender: FDA-Public Use
  Company Number: JP-ASTRAZENECA-2012SE50113

PATIENT
  Age: 90 Year
  Sex: Female

DRUGS (1)
  1. SEROQUEL [Suspect]
     Dosage: HAD BEEN TAKING THE MEDICATION FOR A LONG TIME
     Route: 048

REACTIONS (2)
  - BLOOD PRESSURE DECREASED [None]
  - JAUNDICE [None]
